FAERS Safety Report 9342518 (Version 3)
Quarter: 2013Q3

REPORT INFORMATION
  Report Type: Spontaneous
  Country: DK (occurrence: None)
  Receive Date: 20130607
  Receipt Date: 20130903
  Transmission Date: 20140515
  Serious: Yes (Other)
  Sender: FDA-Public Use
  Company Number: AUR-APL-2013-04745

PATIENT
  Age: 53 Year
  Sex: Female
  Weight: 110 kg

DRUGS (9)
  1. METFORMIN [Suspect]
     Indication: PRODUCT USED FOR UNKNOWN INDICATION
     Dosage: 1000 MG (500 MG, 2 IN 1 D)
  2. JANUVIA [Suspect]
     Indication: PRODUCT USED FOR UNKNOWN INDICATION
     Dosage: 100 MG, 1 D, UNKNOWN
     Dates: start: 2011
  3. LANTUS [Suspect]
     Indication: PRODUCT USED FOR UNKNOWN INDICATION
     Dosage: 1 DOSAGE FORM, 1 DAY
     Dates: start: 2011
  4. FORXIGA [Suspect]
     Indication: PRODUCT USED FOR UNKNOWN INDICATION
     Route: 048
     Dates: start: 20121214, end: 20130118
  5. ELTROXIN [Concomitant]
  6. SIMVASTATIN (SIMVASTATIN) [Concomitant]
  7. CIPRALEX [Concomitant]
  8. FISH OIL (FISH OIL) [Concomitant]
  9. VITAMIN D3 (COLECALCIFEROL) [Concomitant]

REACTIONS (6)
  - Vulvovaginitis [None]
  - Pain [None]
  - Pruritus [None]
  - Inflammation [None]
  - Glycosylated haemoglobin increased [None]
  - Glycosuria [None]
